FAERS Safety Report 16104556 (Version 1)
Quarter: 2019Q1

REPORT INFORMATION
  Report Type: Spontaneous
  Country: FR (occurrence: FR)
  Receive Date: 20190322
  Receipt Date: 20190322
  Transmission Date: 20190418
  Serious: Yes (Life-Threatening)
  Sender: FDA-Public Use
  Company Number: PHHY2019FR064188

PATIENT
  Sex: Female

DRUGS (1)
  1. PARACETAMOL [Suspect]
     Active Substance: ACETAMINOPHEN
     Indication: INTENTIONAL PRODUCT USE ISSUE
     Dosage: UNK
     Route: 048

REACTIONS (2)
  - Diabetic metabolic decompensation [Unknown]
  - Vomiting [Unknown]

NARRATIVE: CASE EVENT DATE: 20190120
